FAERS Safety Report 17630301 (Version 1)
Quarter: 2020Q2

REPORT INFORMATION
  Report Type: Report from Study
  Country: BR (occurrence: BR)
  Receive Date: 20200406
  Receipt Date: 20200406
  Transmission Date: 20200713
  Serious: Yes (Death, Hospitalization, Other)
  Sender: FDA-Public Use
  Company Number: NVSC2020BR092118

PATIENT
  Age: 61 Year
  Sex: Female

DRUGS (1)
  1. KISQALI [Suspect]
     Active Substance: RIBOCICLIB
     Indication: BREAST CANCER METASTATIC
     Dosage: UNK
     Route: 065
     Dates: start: 2019

REACTIONS (9)
  - Hepatic cirrhosis [Fatal]
  - Metastasis [Not Recovered/Not Resolved]
  - Soft tissue mass [Unknown]
  - Sensory loss [Unknown]
  - Malaise [Unknown]
  - Syncope [Unknown]
  - Abdominal distension [Unknown]
  - Liver disorder [Unknown]
  - Drug ineffective [Unknown]

NARRATIVE: CASE EVENT DATE: 201910
